FAERS Safety Report 8508521-7 (Version None)
Quarter: 2012Q3

REPORT INFORMATION
  Report Type: 
  Country: None (occurrence: None)
  Receive Date: 20120713
  Receipt Date: 20120703
  Transmission Date: 20120928
  Serious: Yes (Hospitalization, Other)
  Sender: FDA-Public Use
  Company Number: US-009507513-1201USA02279

PATIENT

DRUGS (6)
  1. FOSAMAX [Suspect]
     Indication: HYPERSENSITIVITY
     Dosage: 10 MG, QD
     Route: 048
     Dates: start: 19990824
  2. ALLEGRA-D 12 HOUR [Concomitant]
     Indication: HYPERSENSITIVITY
     Dates: start: 20030101, end: 20060101
  3. FOSAMAX [Suspect]
     Dosage: 70 MG, UNK
     Route: 048
     Dates: start: 20000601, end: 20060201
  4. BONIVA [Suspect]
     Indication: OSTEOPOROSIS
     Dosage: 150 MG, UNK
     Route: 048
     Dates: start: 20060201, end: 20110801
  5. SYNTHROID [Concomitant]
     Indication: HYPOTHYROIDISM
  6. VITAMINS (UNSPECIFIED) [Suspect]
     Dosage: UNK
     Dates: start: 19920101

REACTIONS (38)
  - SPINAL OSTEOARTHRITIS [None]
  - SPINAL CORD DISORDER [None]
  - DIVERTICULUM [None]
  - RENAL FAILURE [None]
  - ESSENTIAL TREMOR [None]
  - BLOOD DISORDER [None]
  - INTERVERTEBRAL DISC DEGENERATION [None]
  - GASTROOESOPHAGEAL REFLUX DISEASE [None]
  - OSTEOARTHRITIS [None]
  - NECK PAIN [None]
  - INTERMITTENT CLAUDICATION [None]
  - WEIGHT DECREASED [None]
  - DYSPHAGIA [None]
  - DIARRHOEA [None]
  - HYPERTENSIVE NEPHROPATHY [None]
  - FALL [None]
  - LOW TURNOVER OSTEOPATHY [None]
  - SPEECH DISORDER [None]
  - ADVERSE DRUG REACTION [None]
  - FRACTURE DELAYED UNION [None]
  - NAUSEA [None]
  - VASOMOTOR RHINITIS [None]
  - FEMUR FRACTURE [None]
  - HAEMORRHOIDS [None]
  - CORONARY ARTERY DISEASE [None]
  - TINNITUS [None]
  - STRESS URINARY INCONTINENCE [None]
  - HYPOTENSION [None]
  - TACHYCARDIA [None]
  - LEFT VENTRICULAR HYPERTROPHY [None]
  - PULMONARY HYPERTENSION [None]
  - ARTHROPATHY [None]
  - MIGRAINE [None]
  - TRANSIENT ISCHAEMIC ATTACK [None]
  - MUSCULOSKELETAL CHEST PAIN [None]
  - VITAMIN D DEFICIENCY [None]
  - DRUG HYPERSENSITIVITY [None]
  - PALPITATIONS [None]
